FAERS Safety Report 5775549-X (Version None)
Quarter: 2008Q2

REPORT INFORMATION
  Report Type: 
  Country: None (occurrence: None)
  Receive Date: 20080617
  Receipt Date: 20080612
  Transmission Date: 20081010
  Serious: Yes (Hospitalization)
  Sender: FDA-Public Use
  Company Number: FR-AVENTIS-200812232FR

PATIENT
  Age: 83 Year
  Sex: Female

DRUGS (7)
  1. FLAGYL [Suspect]
     Indication: SEPTIC SHOCK
     Route: 048
     Dates: start: 20071230, end: 20080111
  2. FLAGYL [Suspect]
     Route: 048
     Dates: start: 20071230, end: 20080111
  3. CIFLOX                             /00697201/ [Suspect]
     Indication: SEPTIC SHOCK
     Route: 042
     Dates: start: 20071231, end: 20080110
  4. CIFLOX                             /00697201/ [Suspect]
     Route: 042
     Dates: start: 20071231, end: 20080110
  5. ROCEPHIN [Suspect]
     Indication: SEPTIC SHOCK
     Route: 042
     Dates: start: 20071226, end: 20080111
  6. ROCEPHIN [Suspect]
     Route: 042
     Dates: start: 20071226, end: 20080111
  7. LOVENOX [Concomitant]
     Route: 058
     Dates: start: 20071226

REACTIONS (1)
  - CONVULSION [None]
